FAERS Safety Report 9016450 (Version 5)
Quarter: 2014Q2

REPORT INFORMATION
  Report Type: Spontaneous
  Country: US (occurrence: US)
  Receive Date: 20130116
  Receipt Date: 20140424
  Transmission Date: 20141212
  Serious: Yes (Death, Hospitalization)
  Sender: FDA-Public Use
  Company Number: US-B.I. PHARMACEUTICALS,INC./RIDGEFIELD-2013-BI-00473BP

PATIENT
  Sex: Female
  Weight: 73.94 kg

DRUGS (10)
  1. PRADAXA [Suspect]
     Indication: ANTICOAGULANT THERAPY
     Dosage: 150 MG
     Route: 048
     Dates: start: 20110906, end: 20111227
  2. PRADAXA [Suspect]
     Indication: ATRIAL FIBRILLATION
  3. LANTUS [Concomitant]
     Indication: TYPE 2 DIABETES MELLITUS
     Dosage: 6 U
     Route: 058
  4. NOVOLOG [Concomitant]
     Indication: TYPE 2 DIABETES MELLITUS
     Route: 065
  5. LASIX [Concomitant]
     Dosage: 80 MG
     Route: 048
     Dates: start: 20111026
  6. LISINOPRIL [Concomitant]
     Indication: HYPERTENSION
     Dosage: 20 MG
     Route: 048
  7. NEXIUM [Concomitant]
     Dosage: 20 MG
     Route: 048
  8. SYNTHROID [Concomitant]
     Indication: AUTOIMMUNE THYROIDITIS
     Dosage: 112 MCG
     Route: 048
  9. CENTRUM SILVER ULTRA WOMENS [Concomitant]
     Route: 048
  10. ASPIRIN [Concomitant]
     Dosage: 81 MG
     Route: 048

REACTIONS (7)
  - Gastrointestinal haemorrhage [Fatal]
  - Rectal haemorrhage [Unknown]
  - Dyspnoea [Unknown]
  - Hypotension [Unknown]
  - Coagulopathy [Unknown]
  - Contusion [Unknown]
  - Infusion site haematoma [Unknown]
